FAERS Safety Report 8018788-X (Version None)
Quarter: 2012Q1

REPORT INFORMATION
  Report Type: 
  Country: None (occurrence: None)
  Receive Date: 20120103
  Receipt Date: 20111219
  Transmission Date: 20120608
  Serious: Yes (Death)
  Sender: FDA-Public Use
  Company Number: US-PFIZER INC-2011313847

PATIENT
  Age: 33 Year
  Sex: Female

DRUGS (9)
  1. ACETAMINOPHEN [Suspect]
     Route: 048
  2. QUETIAPINE [Suspect]
     Route: 048
  3. DEXTROMETHORPHAN [Suspect]
     Route: 048
  4. PAROXETINE [Suspect]
     Route: 048
  5. TOPIRAMATE [Suspect]
     Route: 048
  6. LAMOTRIGINE [Suspect]
     Route: 048
  7. DIPHENHYDRAMINE HCL [Suspect]
     Route: 048
  8. LORATADINE [Suspect]
     Route: 048
  9. LITHIUM [Suspect]
     Route: 048

REACTIONS (1)
  - COMPLETED SUICIDE [None]
